FAERS Safety Report 13398676 (Version 1)
Quarter: 2017Q2

REPORT INFORMATION
  Report Type: Spontaneous
  Country: US (occurrence: US)
  Receive Date: 20170403
  Receipt Date: 20170403
  Transmission Date: 20170830
  Serious: No
  Sender: FDA-Public Use
  Company Number: US-ELI_LILLY_AND_COMPANY-US201703012314

PATIENT
  Sex: Female

DRUGS (4)
  1. HUMALOG [Suspect]
     Active Substance: INSULIN LISPRO
     Dosage: 14 U, TID BEFORE EACH MEAL
     Route: 058
  2. METFORMIN [Concomitant]
     Active Substance: METFORMIN HYDROCHLORIDE
     Indication: TYPE 2 DIABETES MELLITUS
  3. TOUJEO [Concomitant]
     Active Substance: INSULIN GLARGINE
     Indication: TYPE 2 DIABETES MELLITUS
  4. HUMALOG [Suspect]
     Active Substance: INSULIN LISPRO
     Indication: TYPE 2 DIABETES MELLITUS
     Dosage: UNK U, UNKNOWN
     Route: 058
     Dates: start: 201607

REACTIONS (3)
  - Weight decreased [Recovered/Resolved]
  - Blood glucose increased [Not Recovered/Not Resolved]
  - Blood glucose decreased [Unknown]

NARRATIVE: CASE EVENT DATE: 201607
